FAERS Safety Report 17890464 (Version 1)
Quarter: 2020Q2

REPORT INFORMATION
  Report Type: Spontaneous
  Country: US (occurrence: US)
  Receive Date: 20200612
  Receipt Date: 20200612
  Transmission Date: 20200714
  Serious: Yes (Death, Other)
  Sender: FDA-Public Use
  Company Number: US-AMGEN-USASP2020092699

PATIENT
  Age: 85 Year
  Sex: Female

DRUGS (1)
  1. PROLIA [Suspect]
     Active Substance: DENOSUMAB
     Indication: PRODUCT USED FOR UNKNOWN INDICATION
     Dosage: UNK
     Route: 065

REACTIONS (11)
  - Death [Fatal]
  - Dysstasia [Unknown]
  - Parkinson^s disease [Unknown]
  - Upper limb fracture [Unknown]
  - Palliative care [Unknown]
  - Fall [Unknown]
  - Pain [Not Recovered/Not Resolved]
  - Rotator cuff syndrome [Unknown]
  - Gait inability [Unknown]
  - Bedridden [Unknown]
  - Dysphagia [Unknown]

NARRATIVE: CASE EVENT DATE: 20200604
